FAERS Safety Report 16111963 (Version 1)
Quarter: 2019Q1

REPORT INFORMATION
  Report Type: Spontaneous
  Country: US (occurrence: US)
  Receive Date: 20190221
  Receipt Date: 20190221
  Transmission Date: 20190418
  Serious: No
  Sender: FDA-Public Use
  Company Number: None

PATIENT
  Age: 69 Year
  Sex: Female
  Weight: 94.35 kg

DRUGS (1)
  1. BENLYSTA [Suspect]
     Active Substance: BELIMUMAB
     Indication: SYSTEMIC LUPUS ERYTHEMATOSUS
     Dosage: INFUSE 945.45MG INTRAVENOUSLY OVER 1 HOUR AT WEEK 0, 2 AND 4 AS DIRECTED
     Route: 042
     Dates: start: 201711

REACTIONS (1)
  - Arthralgia [None]
